FAERS Safety Report 11002658 (Version 2)
Quarter: 2015Q3

REPORT INFORMATION
  Report Type: Spontaneous
  Country: US (occurrence: US)
  Receive Date: 20150408
  Receipt Date: 20150719
  Transmission Date: 20151125
  Serious: Yes (Hospitalization, Other)
  Sender: FDA-Public Use
  Company Number: US-ABBVIE-15P-163-1372575-00

PATIENT
  Age: 49 Year
  Sex: Male
  Weight: 68.1 kg

DRUGS (17)
  1. ASPIRIN. [Concomitant]
     Active Substance: ASPIRIN
     Indication: PRODUCT USED FOR UNKNOWN INDICATION
     Route: 048
  2. PERCOCET [Concomitant]
     Active Substance: ACETAMINOPHEN\OXYCODONE HYDROCHLORIDE
     Indication: PRODUCT USED FOR UNKNOWN INDICATION
     Dosage: 7.5MG/35S MG Q 6 HOURS
     Route: 048
  3. DOCUSATE SODIUM. [Concomitant]
     Active Substance: DOCUSATE SODIUM
     Indication: PRODUCT USED FOR UNKNOWN INDICATION
     Route: 048
  4. KEPPRA [Suspect]
     Active Substance: LEVETIRACETAM
     Indication: SEIZURE
     Route: 048
     Dates: start: 201404, end: 20140513
  5. METFORMIN [Concomitant]
     Active Substance: METFORMIN HYDROCHLORIDE
     Indication: DIABETES MELLITUS
     Route: 048
     Dates: start: 2005
  6. LISINOPRIL. [Concomitant]
     Active Substance: LISINOPRIL
     Indication: HYPERTENSION
     Route: 048
     Dates: start: 20140513
  7. SIMVASTATIN. [Concomitant]
     Active Substance: SIMVASTATIN
     Indication: PRODUCT USED FOR UNKNOWN INDICATION
     Dosage: IN THE EVENING
     Route: 048
     Dates: start: 20130107
  8. NEURONTIN [Concomitant]
     Active Substance: GABAPENTIN
     Indication: PRODUCT USED FOR UNKNOWN INDICATION
     Route: 048
     Dates: start: 20130613
  9. DEPAKOTE [Suspect]
     Active Substance: DIVALPROEX SODIUM
     Indication: SEIZURE
     Route: 048
     Dates: start: 201405
  10. TRILEPTIN [Suspect]
     Active Substance: OXCARBAZEPINE
     Indication: SEIZURE
     Route: 065
     Dates: start: 201406
  11. DILANTIN [Suspect]
     Active Substance: PHENYTOIN
     Indication: SEIZURE
     Route: 048
     Dates: start: 201405
  12. NORCO [Concomitant]
     Active Substance: ACETAMINOPHEN\HYDROCODONE BITARTRATE
     Indication: PRODUCT USED FOR UNKNOWN INDICATION
     Dosage: 10MG/325 MG  EVERY 6 HOURS AS NEEDED
     Route: 048
     Dates: start: 20140318, end: 20140422
  13. LIPITOR [Concomitant]
     Active Substance: ATORVASTATIN CALCIUM
     Indication: BLOOD CHOLESTEROL INCREASED
     Route: 048
     Dates: start: 20140422
  14. ANDROGEL [Suspect]
     Active Substance: TESTOSTERONE
     Indication: ANDROGEN REPLACEMENT THERAPY
     Dosage: 2 PUMPS EVERY MORNING
     Route: 061
     Dates: start: 201304, end: 20140422
  15. DILANTIN [Suspect]
     Active Substance: PHENYTOIN
     Route: 048
     Dates: start: 20150522
  16. NOVOLOG [Concomitant]
     Active Substance: INSULIN ASPART
     Indication: DIABETES MELLITUS
     Dosage: 70/3  PER SCHEDULE
     Route: 065
     Dates: start: 2013
  17. MOBIC [Concomitant]
     Active Substance: MELOXICAM
     Indication: PRODUCT USED FOR UNKNOWN INDICATION
     Route: 048
     Dates: start: 20140617, end: 20150619

REACTIONS (26)
  - Hyperlipidaemia [Unknown]
  - Diabetic neuropathy [Unknown]
  - Arteriosclerosis [Unknown]
  - Bone pain [Unknown]
  - White blood cell count increased [Unknown]
  - Abdominal pain lower [Unknown]
  - Somnolence [Unknown]
  - Seizure [Unknown]
  - Adverse drug reaction [Unknown]
  - Anhedonia [Unknown]
  - Restlessness [Unknown]
  - Nausea [Unknown]
  - Disability [Unknown]
  - Economic problem [Unknown]
  - Mood altered [Unknown]
  - Haemorrhoidal haemorrhage [Unknown]
  - Complex partial seizures [Unknown]
  - Road traffic accident [Unknown]
  - Carotid artery stenosis [Unknown]
  - Seizure [Recovered/Resolved]
  - Cerebrovascular accident [Unknown]
  - Mental status changes [Unknown]
  - Anxiety [Unknown]
  - Haemorrhoids [Unknown]
  - Pain [Unknown]
  - Oral disorder [Unknown]

NARRATIVE: CASE EVENT DATE: 201404
